FAERS Safety Report 13073621 (Version 2)
Quarter: 2017Q1

REPORT INFORMATION
  Report Type: Spontaneous
  Country: ES (occurrence: ES)
  Receive Date: 20161229
  Receipt Date: 20170105
  Transmission Date: 20170428
  Serious: Yes (Disabling, Other)
  Sender: FDA-Public Use
  Company Number: ES-JNJFOC-20161220428

PATIENT
  Age: 17 Year
  Sex: Male

DRUGS (3)
  1. RISPERDAL [Suspect]
     Active Substance: RISPERIDONE
     Indication: AUTISM SPECTRUM DISORDER
     Dosage: INITIATED 7-8 MONTHS AGO
     Route: 065
  2. SEROQUEL [Suspect]
     Active Substance: QUETIAPINE FUMARATE
     Indication: AUTISM SPECTRUM DISORDER
     Dosage: INITIATED 7-8 MONTHS AGO
     Route: 065
  3. SERTRALINE [Suspect]
     Active Substance: SERTRALINE HYDROCHLORIDE
     Indication: AUTISM SPECTRUM DISORDER
     Dosage: INITIATED 7-8 MONTHS AGO
     Route: 065

REACTIONS (9)
  - Stereotypy [Not Recovered/Not Resolved]
  - Disability [Not Recovered/Not Resolved]
  - Nerve injury [Unknown]
  - Dyskinesia [Not Recovered/Not Resolved]
  - Fear [Not Recovered/Not Resolved]
  - Paranoia [Not Recovered/Not Resolved]
  - Gynaecomastia [Not Recovered/Not Resolved]
  - Activities of daily living impaired [Not Recovered/Not Resolved]
  - Social anxiety disorder [Not Recovered/Not Resolved]
